FAERS Safety Report 9339335 (Version 3)
Quarter: 2013Q2

REPORT INFORMATION
  Report Type: Spontaneous
  Country: FR (occurrence: FR)
  Receive Date: 20130610
  Receipt Date: 20130617
  Transmission Date: 20140414
  Serious: Yes (Other)
  Sender: FDA-Public Use
  Company Number: FR-JNJFOC-20130521825

PATIENT
  Age: 35 Year
  Sex: Female
  Weight: 45 kg

DRUGS (6)
  1. BIOGARAN [Suspect]
     Indication: PAIN
     Dosage: 37.5 MG/325 MG
     Route: 065
     Dates: start: 20130425, end: 20130523
  2. ZALDIAR [Suspect]
     Indication: PRODUCT USED FOR UNKNOWN INDICATION
     Route: 048
  3. ZALDIAR [Suspect]
     Indication: PRODUCT USED FOR UNKNOWN INDICATION
     Route: 048
     Dates: start: 20130524
  4. ZALDIAR [Suspect]
     Indication: PRODUCT USED FOR UNKNOWN INDICATION
     Route: 048
     Dates: start: 20050101, end: 20130425
  5. SEROPLEX [Concomitant]
     Indication: DEPRESSION
     Route: 065
     Dates: start: 2008
  6. XYZALL [Concomitant]
     Indication: HYPERSENSITIVITY
     Route: 048
     Dates: start: 2013

REACTIONS (8)
  - Drug dependence [Unknown]
  - Acne [Recovered/Resolved]
  - Drug withdrawal syndrome [Unknown]
  - Dermatitis [Recovered/Resolved]
  - Depressed mood [Unknown]
  - Product substitution issue [Recovered/Resolved]
  - Fatigue [Unknown]
  - Mood altered [Unknown]
